FAERS Safety Report 15699122 (Version 1)
Quarter: 2018Q4

REPORT INFORMATION
  Report Type: Spontaneous
  Country: FR (occurrence: FR)
  Receive Date: 20181207
  Receipt Date: 20181207
  Transmission Date: 20190205
  Serious: Yes (Hospitalization)
  Sender: FDA-Public Use
  Company Number: FR-ROCHE-2224528

PATIENT
  Age: 73 Year
  Sex: Female
  Weight: 86 kg

DRUGS (9)
  1. ASPIRINE PROTECT [Suspect]
     Active Substance: ASPIRIN
     Indication: ACUTE CORONARY SYNDROME
     Dosage: COMPRIME GASTRO-RESISTANT
     Route: 048
     Dates: start: 20181010
  2. PLAVIX [Suspect]
     Active Substance: CLOPIDOGREL BISULFATE
     Indication: ACUTE CORONARY SYNDROME
     Route: 048
     Dates: start: 20181010, end: 20181010
  3. LOVENOX [Suspect]
     Active Substance: ENOXAPARIN SODIUM
     Indication: ACUTE CORONARY SYNDROME
     Route: 058
     Dates: start: 20181010
  4. ASPEGIC (ASPIRIN) [Suspect]
     Active Substance: ASPIRIN
     Indication: ACUTE CORONARY SYNDROME
     Dosage: 250 IVD; IN TOTAL
     Route: 042
     Dates: start: 20181010, end: 20181010
  5. DOLIPRANE [Concomitant]
     Active Substance: ACETAMINOPHEN
     Indication: PRODUCT USED FOR UNKNOWN INDICATION
     Route: 048
  6. METALYSE [Suspect]
     Active Substance: TENECTEPLASE
     Indication: ACUTE CORONARY SYNDROME
     Route: 042
     Dates: start: 20181010, end: 20181010
  7. OROZAMUDOL [Concomitant]
     Active Substance: TRAMADOL
     Route: 048
     Dates: start: 20181013
  8. ATORVASTATINE [Concomitant]
     Active Substance: ATORVASTATIN
     Indication: PRODUCT USED FOR UNKNOWN INDICATION
     Route: 048
     Dates: start: 20181010
  9. PANTOPRAZOLE [Concomitant]
     Active Substance: PANTOPRAZOLE
     Indication: PRODUCT USED FOR UNKNOWN INDICATION
     Route: 048
     Dates: start: 20181013

REACTIONS (2)
  - Haemorrhagic anaemia [Recovered/Resolved]
  - Muscle haemorrhage [Recovering/Resolving]

NARRATIVE: CASE EVENT DATE: 20181014
